FAERS Safety Report 7716033-3 (Version None)
Quarter: 2011Q3

REPORT INFORMATION
  Report Type: 
  Country: None (occurrence: None)
  Receive Date: 20110829
  Receipt Date: 20110823
  Transmission Date: 20111222
  Serious: Yes (Hospitalization)
  Sender: FDA-Public Use
  Company Number: BR-SANOFI-AVENTIS-2011SA054562

PATIENT
  Age: 73 Year
  Sex: Male
  Weight: 74 kg

DRUGS (9)
  1. SIMAVASTATIN [Concomitant]
     Route: 065
     Dates: start: 20100101
  2. LACTULOSE [Concomitant]
     Indication: ILL-DEFINED DISORDER
     Route: 065
     Dates: start: 20100101
  3. LANTUS [Suspect]
     Route: 051
     Dates: start: 20101201
  4. TENOFOVIR DISOPROXIL FUMARATE [Concomitant]
     Indication: LIVER DISORDER
     Route: 065
     Dates: start: 20100101
  5. LAMIVUDINE [Concomitant]
     Indication: LIVER DISORDER
     Route: 065
     Dates: start: 20100101
  6. HUMALOG [Concomitant]
     Route: 065
     Dates: start: 20101201
  7. CARVEDILOL [Concomitant]
     Route: 065
     Dates: start: 20100101
  8. OXYBUTYNIN [Concomitant]
     Indication: URINARY TRACT DISORDER
     Route: 065
     Dates: start: 20100101
  9. GENERAL NUTRIENTS [Concomitant]
     Route: 065
     Dates: start: 20110101

REACTIONS (9)
  - FATIGUE [None]
  - WRONG TECHNIQUE IN DRUG USAGE PROCESS [None]
  - GAIT DISTURBANCE [None]
  - INJECTION SITE HAEMORRHAGE [None]
  - ABDOMINAL PAIN [None]
  - HYPOKINESIA [None]
  - INJECTION SITE PAIN [None]
  - GENERAL PHYSICAL HEALTH DETERIORATION [None]
  - INJECTION SITE HAEMATOMA [None]
